FAERS Safety Report 5920063-1 (Version None)
Quarter: 2008Q4

REPORT INFORMATION
  Report Type: 
  Country: None (occurrence: None)
  Receive Date: 20081014
  Receipt Date: 20080929
  Transmission Date: 20090506
  Serious: Yes (Hospitalization)
  Sender: FDA-Public Use
  Company Number: 2008S1017777

PATIENT
  Sex: Female

DRUGS (1)
  1. FENTANYL TRANSDERMAL SYSTEM [Suspect]
     Dosage: 100 UG;EVERY HOUR; TRANSDERMAL
     Route: 062

REACTIONS (2)
  - OVERDOSE [None]
  - UNRESPONSIVE TO STIMULI [None]
